FAERS Safety Report 25603033 (Version 1)
Quarter: 2025Q3

REPORT INFORMATION
  Report Type: Spontaneous
  Country: US (occurrence: US)
  Receive Date: 20250724
  Receipt Date: 20250724
  Transmission Date: 20251021
  Serious: No
  Sender: GALPHARM INTERNATIONAL
  Company Number: US-PERRIGO-25US007408

PATIENT

DRUGS (9)
  1. IBUPROFEN [Suspect]
     Active Substance: IBUPROFEN
     Indication: Pain
     Route: 048
  2. IBUPROFEN [Suspect]
     Active Substance: IBUPROFEN
     Indication: Inflammation
  3. IBUPROFEN [Suspect]
     Active Substance: IBUPROFEN
     Indication: Swelling
  4. IBUPROFEN [Suspect]
     Active Substance: IBUPROFEN
     Indication: Pyrexia
  5. IBUPROFEN [Suspect]
     Active Substance: IBUPROFEN
     Indication: Headache
  6. IBUPROFEN [Suspect]
     Active Substance: IBUPROFEN
     Indication: Myalgia
  7. IBUPROFEN [Suspect]
     Active Substance: IBUPROFEN
     Indication: Muscle spasms
  8. IBUPROFEN [Suspect]
     Active Substance: IBUPROFEN
     Indication: Injury
  9. IBUPROFEN [Suspect]
     Active Substance: IBUPROFEN
     Indication: Toothache

REACTIONS (1)
  - Drug effective for unapproved indication [Unknown]
